FAERS Safety Report 23019906 (Version 1)
Quarter: 2023Q4

REPORT INFORMATION
  Report Type: Spontaneous
  Country: US (occurrence: US)
  Receive Date: 20231003
  Receipt Date: 20231003
  Transmission Date: 20240109
  Serious: Yes (Hospitalization)
  Sender: FDA-Public Use
  Company Number: US-MYLANLABS-2023M1103168

PATIENT
  Age: 60 Year
  Sex: Male

DRUGS (4)
  1. CISPLATIN [Suspect]
     Active Substance: CISPLATIN
     Indication: Neuroendocrine tumour of the lung
     Dosage: UNK UNK, CYCLE (4 CYCLES)
     Route: 065
  2. ETOPOSIDE [Suspect]
     Active Substance: ETOPOSIDE
     Indication: Neuroendocrine tumour of the lung
     Dosage: UNK, CYCLE (4 CYCLES)
     Route: 065
  3. PEMBROLIZUMAB [Concomitant]
     Active Substance: PEMBROLIZUMAB
     Indication: Metastases to meninges
     Dosage: 200 MILLIGRAM, Q3W  FOUR CYCLES
     Route: 065
  4. BEVACIZUMAB [Concomitant]
     Active Substance: BEVACIZUMAB
     Indication: Metastases to meninges
     Dosage: 7.5 MILLIGRAM/KILOGRAM, Q3W,  8 CYCLES
     Route: 065

REACTIONS (1)
  - Drug ineffective [Unknown]
